FAERS Safety Report 13372862 (Version 1)
Quarter: 2017Q1

REPORT INFORMATION
  Report Type: Spontaneous
  Country: US (occurrence: US)
  Receive Date: 20170325
  Receipt Date: 20170325
  Transmission Date: 20170429
  Serious: Yes (Disabling)
  Sender: FDA-Public Use
  Company Number: None

PATIENT
  Age: 56 Year
  Sex: Female
  Weight: 78.75 kg

DRUGS (11)
  1. B VITAMINS [Concomitant]
     Active Substance: CYANOCOBALAMIN\DEXPANTHENOL\NIACINAMIDE\PYRIDOXINE HYDROCHLORIDE\RIBOFLAVIN 5^-PHOSPHATE SODIUM\THIAMINE HYDROCHLORIDE\VITAMIN B COMPLEX
  2. GABAPENTIN. [Concomitant]
     Active Substance: GABAPENTIN
  3. MAGNESIUM [Concomitant]
     Active Substance: MAGNESIUM
  4. BIOTIN [Concomitant]
     Active Substance: BIOTIN
  5. POLYPHENOL BLEND [Concomitant]
  6. DULOXETINE. [Concomitant]
     Active Substance: DULOXETINE
  7. MORPHINE [Concomitant]
     Active Substance: MORPHINE
  8. ATENOLOL. [Concomitant]
     Active Substance: ATENOLOL
  9. DAILY VITAMIN [Concomitant]
     Active Substance: VITAMINS
  10. LEVOTHYROXINE. [Concomitant]
     Active Substance: LEVOTHYROXINE
  11. LEVAQUIN [Suspect]
     Active Substance: LEVOFLOXACIN
     Indication: PNEUMONIA
     Dosage: ?          QUANTITY:7 TABLET(S);?
     Route: 048
     Dates: start: 20161017, end: 20161023

REACTIONS (16)
  - Bedridden [None]
  - Pain [None]
  - General physical health deterioration [None]
  - Dysstasia [None]
  - Fatigue [None]
  - Myalgia [None]
  - Vision blurred [None]
  - Back pain [None]
  - Arthralgia [None]
  - Tendon pain [None]
  - Antinuclear antibody increased [None]
  - Neuropathy peripheral [None]
  - Dizziness [None]
  - Nausea [None]
  - Headache [None]
  - Tendon rupture [None]

NARRATIVE: CASE EVENT DATE: 20161017
